FAERS Safety Report 5496014-3 (Version None)
Quarter: 2007Q4

REPORT INFORMATION
  Report Type: 
  Country: None (occurrence: None)
  Receive Date: 20071025
  Receipt Date: 20071015
  Transmission Date: 20080405
  Serious: Yes (Hospitalization)
  Sender: FDA-Public Use
  Company Number: US-AMGEN-US182578

PATIENT

DRUGS (8)
  1. ENBREL [Suspect]
     Indication: RHEUMATOID ARTHRITIS
     Route: 064
     Dates: start: 20050811, end: 20051111
  2. PRENATAL VITAMINS [Concomitant]
     Route: 064
     Dates: start: 20050811, end: 20060516
  3. INFLUENZA VACCINE [Concomitant]
     Route: 064
     Dates: start: 20051111, end: 20051111
  4. CHLORASEPTIC [Concomitant]
     Route: 064
     Dates: start: 20051206, end: 20051206
  5. CORTISONE ACETATE TAB [Concomitant]
     Route: 064
     Dates: start: 20060123, end: 20060123
  6. ROBITUSSIN-DM [Concomitant]
     Route: 064
     Dates: start: 20060502, end: 20060509
  7. TYLENOL (CAPLET) [Concomitant]
     Route: 064
     Dates: start: 20060514, end: 20060516
  8. ANTIBIOTICS NOS [Concomitant]
     Route: 064
     Dates: start: 20060329, end: 20060329

REACTIONS (6)
  - CYANOSIS NEONATAL [None]
  - HYPOTENSION [None]
  - NEONATAL RESPIRATORY DISTRESS SYNDROME [None]
  - PNEUMONIA [None]
  - PULMONARY HYPERTENSION [None]
  - SEPTIC SHOCK [None]
